FAERS Safety Report 9931139 (Version 1)
Quarter: 2014Q1

REPORT INFORMATION
  Report Type: Spontaneous
  Country: CH (occurrence: CH)
  Receive Date: 20140227
  Receipt Date: 20140227
  Transmission Date: 20141002
  Serious: Yes (Other)
  Sender: FDA-Public Use
  Company Number: PHHY2014CH022805

PATIENT
  Age: 29 Year
  Sex: Female

DRUGS (1)
  1. TERBINAFINE [Suspect]
     Indication: ANTIFUNGAL TREATMENT

REACTIONS (7)
  - Biliary cirrhosis primary [Unknown]
  - Pruritus generalised [Recovering/Resolving]
  - Urticaria [Recovering/Resolving]
  - Tryptase increased [Unknown]
  - Pruritus [Recovering/Resolving]
  - Autoimmune disorder [Unknown]
  - Hepatic enzyme increased [Unknown]
